FAERS Safety Report 15620176 (Version 1)
Quarter: 2018Q4

REPORT INFORMATION
  Report Type: Spontaneous
  Country: US (occurrence: US)
  Receive Date: 20181115
  Receipt Date: 20181115
  Transmission Date: 20190205
  Serious: No
  Sender: FDA-Public Use
  Company Number: US-BAUSCH-BL-2017-027304

PATIENT
  Age: 46 Year
  Sex: Female

DRUGS (2)
  1. ATIVAN [Suspect]
     Active Substance: LORAZEPAM
     Indication: PRODUCT USED FOR UNKNOWN INDICATION
     Route: 065
     Dates: start: 2017
  2. RUBRACA [Suspect]
     Active Substance: RUCAPARIB CAMSYLATE
     Indication: OVARIAN CANCER
     Route: 048
     Dates: start: 20170801

REACTIONS (8)
  - Nausea [Unknown]
  - White blood cell count decreased [Unknown]
  - Abdominal pain upper [Unknown]
  - Red blood cell count decreased [Unknown]
  - Diarrhoea [Unknown]
  - Back pain [Unknown]
  - Emotional disorder [Unknown]
  - Dysgeusia [Unknown]

NARRATIVE: CASE EVENT DATE: 20170801
